FAERS Safety Report 5381985-6 (Version None)
Quarter: 2007Q3

REPORT INFORMATION
  Report Type: 
  Country: None (occurrence: None)
  Receive Date: 20070709
  Receipt Date: 20070629
  Transmission Date: 20080115
  Serious: Yes (Other)
  Sender: FDA-Public Use
  Company Number: B0473876A

PATIENT
  Age: 63 Year
  Sex: Female

DRUGS (2)
  1. AROPAX [Suspect]
     Indication: DEPRESSION
     Dosage: 20MG PER DAY
     Dates: start: 20040801, end: 20070522
  2. KARVEA [Concomitant]
     Route: 065

REACTIONS (13)
  - ALCOHOL USE [None]
  - ANGER [None]
  - CRYING [None]
  - DEPRESSED MOOD [None]
  - DEPRESSION [None]
  - DRUG WITHDRAWAL SYNDROME [None]
  - EMOTIONAL DISTRESS [None]
  - FEELING OF DESPAIR [None]
  - LOSS OF LIBIDO [None]
  - MENTAL DISORDER [None]
  - PALPITATIONS [None]
  - TINNITUS [None]
  - WEIGHT INCREASED [None]
